FAERS Safety Report 7683956-3 (Version None)
Quarter: 2011Q3

REPORT INFORMATION
  Report Type: 
  Country: None (occurrence: None)
  Receive Date: 20110815
  Receipt Date: 20110809
  Transmission Date: 20111222
  Serious: Yes (Life-Threatening, Hospitalization)
  Sender: FDA-Public Use
  Company Number: US-ROCHE-796287

PATIENT
  Age: 79 Year
  Sex: Female
  Weight: 45.7 kg

DRUGS (3)
  1. CARBOPLATIN [Suspect]
     Indication: OVARIAN EPITHELIAL CANCER
     Dosage: 6 AUC IP ON DAY 1
     Route: 033
     Dates: start: 20101104, end: 20110303
  2. BEVACIZUMAB [Suspect]
     Indication: OVARIAN EPITHELIAL CANCER
     Dosage: OVER 30 - 90 MINS ON DAY 1,
     Route: 042
     Dates: start: 20101104, end: 20110616
  3. PACLITAXEL [Suspect]
     Indication: OVARIAN EPITHELIAL CANCER
     Dosage: OVER 1 HOUR ON DAY 1 , 8  AND 15
     Route: 042
     Dates: start: 20101104, end: 20110310

REACTIONS (3)
  - CEREBELLAR SYNDROME [None]
  - ATAXIA [None]
  - TREMOR [None]
